FAERS Safety Report 4948314-0 (Version None)
Quarter: 2006Q1

REPORT INFORMATION
  Report Type: 
  Country: None (occurrence: None)
  Receive Date: 20060320
  Receipt Date: 20060308
  Transmission Date: 20060701
  Serious: Yes (Hospitalization)
  Sender: FDA-Public Use
  Company Number: JP-ROCHE-439933

PATIENT
  Age: 49 Year
  Sex: Male
  Weight: 66 kg

DRUGS (9)
  1. TAMIFLU [Suspect]
     Route: 048
     Dates: start: 20060223, end: 20060224
  2. PANALDINE [Concomitant]
     Dosage: FORM = ORAL FORMULATION (NOT OTHERWISE SPECIFIED)
     Route: 048
  3. ASPIRIN [Concomitant]
     Route: 048
  4. SIGMART [Concomitant]
     Route: 065
  5. RENIVACE [Concomitant]
     Route: 048
  6. ARTIST [Concomitant]
     Route: 048
  7. MAGNESIUM OXIDE [Concomitant]
     Route: 065
  8. SELBEX [Concomitant]
     Dosage: FORM = ORAL FORMULATION (NOT OTHERWISE SPECIFIED)
     Route: 048
  9. MERISLON [Concomitant]
     Route: 048

REACTIONS (3)
  - FACE OEDEMA [None]
  - OEDEMA PERIPHERAL [None]
  - URTICARIA [None]
